FAERS Safety Report 8984500 (Version 1)
Quarter: 2012Q4

REPORT INFORMATION
  Report Type: 
  Country: NL (occurrence: NL)
  Receive Date: 20121226
  Receipt Date: 20121226
  Transmission Date: 20130627
  Serious: Yes (Hospitalization)
  Sender: FDA-Public Use
  Company Number: NL-PFIZER INC-2012309977

PATIENT
  Age: 31 Year
  Sex: Female
  Weight: 72 kg

DRUGS (1)
  1. GENOTROPIN [Suspect]
     Dosage: 0.5 mg, 1x/day, 7 injections/week
     Route: 058
     Dates: start: 20020514

REACTIONS (1)
  - Nephrolithiasis [Unknown]
